FAERS Safety Report 15934440 (Version 2)
Quarter: 2019Q1

REPORT INFORMATION
  Report Type: Report from Study
  Country: US (occurrence: US)
  Receive Date: 20190207
  Receipt Date: 20190211
  Transmission Date: 20190417
  Serious: Yes (Other)
  Sender: FDA-Public Use
  Company Number: US-BAUSCH-BL-2019-003179

PATIENT
  Age: 59 Year
  Sex: Male
  Weight: 118.04 kg

DRUGS (1)
  1. APRISO [Suspect]
     Active Substance: MESALAMINE
     Indication: COLITIS
     Route: 065

REACTIONS (1)
  - Neuroendocrine tumour [Recovering/Resolving]

NARRATIVE: CASE EVENT DATE: 20180911
